FAERS Safety Report 8773273 (Version 1)
Quarter: 2012Q4

REPORT INFORMATION
  Report Type: 
  Country: IT (occurrence: IT)
  Receive Date: 20120907
  Receipt Date: 20120907
  Transmission Date: 20130627
  Serious: Yes (Other)
  Sender: FDA-Public Use
  Company Number: IT-UCBSA-064908

PATIENT
  Sex: Male

DRUGS (1)
  1. CIMZIA [Suspect]
     Indication: RHEUMATOID ARTHRITIS
     Dosage: 200 MG

REACTIONS (3)
  - Gastrointestinal haemorrhage [Unknown]
  - Thrombocytopenia [Unknown]
  - Leukopenia [Unknown]
